FAERS Safety Report 10071769 (Version 2)
Quarter: 2014Q2

REPORT INFORMATION
  Report Type: Spontaneous
  Country: US (occurrence: US)
  Receive Date: 20140411
  Receipt Date: 20140425
  Transmission Date: 20141212
  Serious: Yes (Hospitalization)
  Sender: FDA-Public Use
  Company Number: US-BIOGENIDEC-2014BI032588

PATIENT
  Sex: Male

DRUGS (1)
  1. AVONEX [Suspect]
     Indication: MULTIPLE SCLEROSIS
     Route: 030
     Dates: start: 20070501, end: 20140101

REACTIONS (6)
  - Loss of control of legs [Unknown]
  - Gastroenteritis viral [Recovered/Resolved]
  - Blindness unilateral [Not Recovered/Not Resolved]
  - Tunnel vision [Not Recovered/Not Resolved]
  - Drug ineffective [Unknown]
  - Influenza like illness [Recovered/Resolved]
